FAERS Safety Report 5088135-4 (Version None)
Quarter: 2006Q3

REPORT INFORMATION
  Report Type: 
  Country: None (occurrence: None)
  Receive Date: 20060727
  Receipt Date: 20060508
  Transmission Date: 20061208
  Serious: Yes (Other)
  Sender: FDA-Public Use
  Company Number: 2005161045

PATIENT
  Sex: Female

DRUGS (6)
  1. LYRICA [Suspect]
     Indication: NEUROPATHY PERIPHERAL
     Dosage: 150 MG (50 MG,3 IN 1 D),ORAL
     Route: 048
     Dates: start: 20051024
  2. DIOVAN [Concomitant]
  3. NORVASC [Concomitant]
  4. AMITRIPTYLINE HCL [Concomitant]
  5. LIPITOR [Concomitant]
  6. ZANAFLEX [Concomitant]

REACTIONS (6)
  - BALANCE DISORDER [None]
  - BURNING SENSATION [None]
  - DRUG INEFFECTIVE [None]
  - INSOMNIA [None]
  - PAIN [None]
  - PANIC REACTION [None]
